FAERS Safety Report 23851975 (Version 1)
Quarter: 2024Q2

REPORT INFORMATION
  Report Type: Spontaneous
  Country: US (occurrence: US)
  Receive Date: 20240514
  Receipt Date: 20240514
  Transmission Date: 20240715
  Serious: Yes (Life-Threatening, Hospitalization)
  Sender: FDA-Public Use
  Company Number: US-Accord-389767

PATIENT
  Sex: Male
  Weight: 84 kg

DRUGS (64)
  1. FLUOROURACIL [Suspect]
     Active Substance: FLUOROURACIL
     Indication: Colorectal cancer
     Dosage: INTRAVENOUS US
     Route: 042
     Dates: start: 20220118, end: 20220118
  2. OXALIPLATIN [Suspect]
     Active Substance: OXALIPLATIN
     Indication: Colorectal cancer
     Dosage: IV DRIP, SINGLE DOSE
     Route: 042
     Dates: start: 20220118, end: 20220118
  3. BEVACIZUMAB [Suspect]
     Active Substance: BEVACIZUMAB
     Indication: Colorectal cancer
     Dosage: SINGLE DOSE, IV DRIP
     Route: 042
     Dates: start: 20220118, end: 20220118
  4. LEUCOVORIN [Suspect]
     Active Substance: LEUCOVORIN\LEUCOVORIN CALCIUM
     Indication: Colorectal cancer
     Dosage: INTRAVENOUS USE
     Route: 042
     Dates: start: 20220118, end: 20220118
  5. ZIMBERELIMAB [Suspect]
     Active Substance: ZIMBERELIMAB
     Indication: Colorectal cancer
     Dosage: IV DRIP, SINGLE DOSE
     Route: 042
     Dates: start: 20220118, end: 20220118
  6. XARELTO [Concomitant]
     Active Substance: RIVAROXABAN
     Dates: start: 20200701
  7. ACETAMINOPHEN [Concomitant]
     Active Substance: ACETAMINOPHEN
     Dates: start: 20220217
  8. DEXAMETHASONE [Concomitant]
     Active Substance: DEXAMETHASONE
     Dates: start: 20220118
  9. DIPHENHYDRAMINE [Concomitant]
     Active Substance: DIPHENHYDRAMINE
     Dates: start: 20220215
  10. GLUCOSE W/SODIUM CHLORIDE [Concomitant]
     Dates: start: 20220118
  11. IBUPROFEN [Concomitant]
     Active Substance: IBUPROFEN
     Dates: start: 20220411
  12. LIDOCAINE [Concomitant]
     Active Substance: LIDOCAINE
     Dates: start: 20220725, end: 20220727
  13. PLATELETS [Concomitant]
     Active Substance: HUMAN PLATELET, ALLOGENIC
     Dates: start: 20220624, end: 20220718
  14. POTASSIUM CHLORIDE [Concomitant]
     Active Substance: POTASSIUM CHLORIDE
     Dates: start: 20210101
  15. HUMAN RED BLOOD CELL [Concomitant]
     Active Substance: HUMAN RED BLOOD CELL
     Dates: start: 20220628, end: 20220628
  16. SODIUM CHLORIDE [Concomitant]
     Active Substance: SODIUM CHLORIDE
     Dates: start: 20220118
  17. TORADOL [Concomitant]
     Active Substance: KETOROLAC TROMETHAMINE
     Dates: start: 20220725, end: 20220727
  18. FLUOROURACIL [Suspect]
     Active Substance: FLUOROURACIL
     Indication: Colorectal cancer
     Dosage: INTRAVENOUS US
     Route: 042
     Dates: start: 20220228, end: 20220228
  19. BEVACIZUMAB [Suspect]
     Active Substance: BEVACIZUMAB
     Indication: Colorectal cancer
     Dosage: SINGLE DOSE, IV DRIP
     Route: 042
     Dates: start: 20220201, end: 20220201
  20. BEVACIZUMAB [Suspect]
     Active Substance: BEVACIZUMAB
     Indication: Colorectal cancer
     Dosage: SINGLE DOSE, IV DRIP
     Route: 042
     Dates: start: 20220215, end: 20220215
  21. BEVACIZUMAB [Suspect]
     Active Substance: BEVACIZUMAB
     Indication: Colorectal cancer
     Dosage: SINGLE DOSE, IV DRIP
     Route: 042
     Dates: start: 20220228, end: 20220228
  22. BEVACIZUMAB [Suspect]
     Active Substance: BEVACIZUMAB
     Indication: Colorectal cancer
     Dosage: SINGLE DOSE, IV DRIP
     Route: 042
     Dates: start: 20220314, end: 20220314
  23. BEVACIZUMAB [Suspect]
     Active Substance: BEVACIZUMAB
     Indication: Colorectal cancer
     Dosage: SINGLE DOSE, IV DRIP
     Route: 042
     Dates: start: 20220328, end: 20220328
  24. BEVACIZUMAB [Suspect]
     Active Substance: BEVACIZUMAB
     Indication: Colorectal cancer
     Dosage: SINGLE DOSE, IV DRIP
     Route: 042
     Dates: start: 20220411, end: 20220411
  25. BEVACIZUMAB [Suspect]
     Active Substance: BEVACIZUMAB
     Indication: Colorectal cancer
     Dosage: SINGLE DOSE, IV DRIP
     Route: 042
     Dates: start: 20220425, end: 20220425
  26. BEVACIZUMAB [Suspect]
     Active Substance: BEVACIZUMAB
     Indication: Colorectal cancer
     Dosage: SINGLE DOSE, IV DRIP
     Route: 042
     Dates: start: 20220516, end: 20220516
  27. BEVACIZUMAB [Suspect]
     Active Substance: BEVACIZUMAB
     Indication: Colorectal cancer
     Dosage: SINGLE DOSE, IV DRIP
     Route: 042
     Dates: start: 20220531, end: 20220531
  28. BEVACIZUMAB [Suspect]
     Active Substance: BEVACIZUMAB
     Indication: Colorectal cancer
     Dosage: SINGLE DOSE, IV DRIP
     Route: 042
     Dates: start: 20220613, end: 20220613
  29. ZIMBERELIMAB [Suspect]
     Active Substance: ZIMBERELIMAB
     Indication: Colorectal cancer
     Dosage: IV DRIP, SINGLE DOSE
     Route: 042
     Dates: start: 20220215, end: 20220215
  30. ZIMBERELIMAB [Suspect]
     Active Substance: ZIMBERELIMAB
     Indication: Colorectal cancer
     Dosage: IV DRIP, SINGLE DOSE
     Route: 042
     Dates: start: 20220314, end: 20220314
  31. ZIMBERELIMAB [Suspect]
     Active Substance: ZIMBERELIMAB
     Indication: Colorectal cancer
     Dosage: IV DRIP, SINGLE DOSE
     Route: 042
     Dates: start: 20220411, end: 20220411
  32. ZIMBERELIMAB [Suspect]
     Active Substance: ZIMBERELIMAB
     Indication: Colorectal cancer
     Dosage: IV DRIP, SINGLE DOSE
     Route: 042
     Dates: start: 20220516, end: 20220516
  33. ZIMBERELIMAB [Suspect]
     Active Substance: ZIMBERELIMAB
     Indication: Colorectal cancer
     Dosage: IV DRIP, SINGLE DOSE
     Route: 042
     Dates: start: 20220613, end: 20220613
  34. LEUCOVORIN [Suspect]
     Active Substance: LEUCOVORIN\LEUCOVORIN CALCIUM
     Indication: Colorectal cancer
     Dosage: INTRAVENOUS USE
     Route: 042
     Dates: start: 20220201, end: 20220201
  35. LEUCOVORIN [Suspect]
     Active Substance: LEUCOVORIN\LEUCOVORIN CALCIUM
     Indication: Colorectal cancer
     Dosage: INTRAVENOUS USE
     Route: 042
     Dates: start: 20220215, end: 20220215
  36. LEUCOVORIN [Suspect]
     Active Substance: LEUCOVORIN\LEUCOVORIN CALCIUM
     Indication: Colorectal cancer
     Dosage: INTRAVENOUS USE
     Route: 042
     Dates: start: 20220228, end: 20220228
  37. LEUCOVORIN [Suspect]
     Active Substance: LEUCOVORIN\LEUCOVORIN CALCIUM
     Indication: Colorectal cancer
     Dosage: INTRAVENOUS USE
     Route: 042
     Dates: start: 20220314, end: 20220314
  38. LEUCOVORIN [Suspect]
     Active Substance: LEUCOVORIN\LEUCOVORIN CALCIUM
     Indication: Colorectal cancer
     Dosage: INTRAVENOUS USE
     Route: 042
     Dates: start: 20220328, end: 20220328
  39. LEUCOVORIN [Suspect]
     Active Substance: LEUCOVORIN\LEUCOVORIN CALCIUM
     Indication: Colorectal cancer
     Dosage: INTRAVENOUS USE
     Route: 042
     Dates: start: 20220411, end: 20220411
  40. LEUCOVORIN [Suspect]
     Active Substance: LEUCOVORIN\LEUCOVORIN CALCIUM
     Indication: Colorectal cancer
     Dosage: INTRAVENOUS USE
     Route: 042
     Dates: start: 20220425, end: 20220425
  41. LEUCOVORIN [Suspect]
     Active Substance: LEUCOVORIN\LEUCOVORIN CALCIUM
     Indication: Colorectal cancer
     Dosage: INTRAVENOUS USE
     Route: 042
     Dates: start: 20220516, end: 20220516
  42. LEUCOVORIN [Suspect]
     Active Substance: LEUCOVORIN\LEUCOVORIN CALCIUM
     Indication: Colorectal cancer
     Dosage: INTRAVENOUS USE
     Route: 042
     Dates: start: 20220531, end: 20220531
  43. LEUCOVORIN [Suspect]
     Active Substance: LEUCOVORIN\LEUCOVORIN CALCIUM
     Indication: Colorectal cancer
     Dosage: INTRAVENOUS USE
     Route: 042
     Dates: start: 20220613, end: 20220613
  44. LEUCOVORIN [Suspect]
     Active Substance: LEUCOVORIN\LEUCOVORIN CALCIUM
     Indication: Colorectal cancer
     Dosage: INTRAVENOUS USE
     Route: 042
     Dates: start: 20220718, end: 20220718
  45. OXALIPLATIN [Suspect]
     Active Substance: OXALIPLATIN
     Indication: Colorectal cancer
     Dosage: IV DRIP, SINGLE DOSE
     Route: 042
     Dates: start: 20220201, end: 20220201
  46. OXALIPLATIN [Suspect]
     Active Substance: OXALIPLATIN
     Indication: Colorectal cancer
     Dosage: IV DRIP, SINGLE DOSE
     Route: 042
     Dates: start: 20220215, end: 20220215
  47. OXALIPLATIN [Suspect]
     Active Substance: OXALIPLATIN
     Indication: Colorectal cancer
     Dosage: IV DRIP, SINGLE DOSE
     Route: 042
     Dates: start: 20220228, end: 20220228
  48. OXALIPLATIN [Suspect]
     Active Substance: OXALIPLATIN
     Indication: Colorectal cancer
     Dosage: IV DRIP, SINGLE DOSE
     Route: 042
     Dates: start: 20220314, end: 20220314
  49. OXALIPLATIN [Suspect]
     Active Substance: OXALIPLATIN
     Indication: Colorectal cancer
     Dosage: IV DRIP, SINGLE DOSE
     Route: 042
     Dates: start: 20220328, end: 20220328
  50. OXALIPLATIN [Suspect]
     Active Substance: OXALIPLATIN
     Indication: Colorectal cancer
     Dosage: IV DRIP, SINGLE DOSE
     Route: 042
     Dates: start: 20220411, end: 20220411
  51. OXALIPLATIN [Suspect]
     Active Substance: OXALIPLATIN
     Indication: Colorectal cancer
     Dosage: IV DRIP, SINGLE DOSE
     Route: 042
     Dates: start: 20220425, end: 20220425
  52. OXALIPLATIN [Suspect]
     Active Substance: OXALIPLATIN
     Indication: Colorectal cancer
     Dosage: IV DRIP, SINGLE DOSE
     Route: 042
     Dates: start: 20220516, end: 20220516
  53. OXALIPLATIN [Suspect]
     Active Substance: OXALIPLATIN
     Indication: Colorectal cancer
     Dosage: IV DRIP, SINGLE DOSE
     Route: 042
     Dates: start: 20220531, end: 20220531
  54. OXALIPLATIN [Suspect]
     Active Substance: OXALIPLATIN
     Indication: Colorectal cancer
     Dosage: IV DRIP, SINGLE DOSE
     Route: 042
     Dates: start: 20220613, end: 20220613
  55. FLUOROURACIL [Suspect]
     Active Substance: FLUOROURACIL
     Indication: Colorectal cancer
     Dosage: INTRAVENOUS USE
     Route: 042
     Dates: start: 20220201, end: 20220201
  56. FLUOROURACIL [Suspect]
     Active Substance: FLUOROURACIL
     Indication: Colorectal cancer
     Dosage: INTRAVENOUS US
     Route: 042
     Dates: start: 20220228, end: 20220228
  57. FLUOROURACIL [Suspect]
     Active Substance: FLUOROURACIL
     Indication: Colorectal cancer
     Dosage: INTRAVENOUS US
     Route: 042
     Dates: start: 20220314, end: 20220314
  58. FLUOROURACIL [Suspect]
     Active Substance: FLUOROURACIL
     Indication: Colorectal cancer
     Dosage: INTRAVENOUS US
     Route: 042
     Dates: start: 20220328, end: 20220328
  59. FLUOROURACIL [Suspect]
     Active Substance: FLUOROURACIL
     Indication: Colorectal cancer
     Dosage: INTRAVENOUS US
     Route: 042
     Dates: start: 20220411, end: 20220411
  60. FLUOROURACIL [Suspect]
     Active Substance: FLUOROURACIL
     Indication: Colorectal cancer
     Dosage: INTRAVENOUS US
     Route: 042
     Dates: start: 20220425, end: 20220425
  61. FLUOROURACIL [Suspect]
     Active Substance: FLUOROURACIL
     Indication: Colorectal cancer
     Dosage: INTRAVENOUS US
     Route: 042
     Dates: start: 20220516, end: 20220516
  62. FLUOROURACIL [Suspect]
     Active Substance: FLUOROURACIL
     Indication: Colorectal cancer
     Dosage: INTRAVENOUS US
     Route: 042
     Dates: start: 20220531, end: 20220531
  63. FLUOROURACIL [Suspect]
     Active Substance: FLUOROURACIL
     Indication: Colorectal cancer
     Dosage: INTRAVENOUS US
     Route: 042
     Dates: start: 20220613, end: 20220613
  64. FLUOROURACIL [Suspect]
     Active Substance: FLUOROURACIL
     Indication: Colorectal cancer
     Dosage: INTRAVENOUS US
     Route: 042
     Dates: start: 20220718, end: 20220718

REACTIONS (1)
  - Platelet count decreased [Recovered/Resolved]

NARRATIVE: CASE EVENT DATE: 20220718
